FAERS Safety Report 16944015 (Version 2)
Quarter: 2020Q1

REPORT INFORMATION
  Report Type: Spontaneous
  Country: NL (occurrence: NL)
  Receive Date: 20191022
  Receipt Date: 20200103
  Transmission Date: 20200409
  Serious: Yes (Other)
  Sender: FDA-Public Use
  Company Number: NL-TEVA-2019-NL-1124895

PATIENT
  Age: 66 Year
  Sex: Male
  Weight: 80 kg

DRUGS (11)
  1. OMEPRAZOL CAPSULE MSR 40MG [Concomitant]
     Active Substance: OMEPRAZOLE
     Dosage: 1 CAPSULE 2 TIMES A DAY
  2. OXYCODON HCL CAPSULE  5MG [Concomitant]
     Dosage: 1 CAPSULE NO MORE THAN 6 TIMES A DAY
  3. OXYCODON TABLET MGA  15MG [Concomitant]
     Dosage: 2 TIMES A DAY 1 TABLET
  4. PREGABALINE CAPSULE, 75 MG (MILLIGRAM) [Suspect]
     Active Substance: PREGABALIN
     Indication: PAIN
     Dosage: 2X PER DAY 1 TABLET
     Dates: start: 20190829, end: 20190830
  5. GLICLAZIDE TABLET MGA 80MG [Concomitant]
     Active Substance: GLICLAZIDE
     Dosage: MORNING 2 TABLETS EVENING 1 TABLET
  6. DIAZEPAM TABLET  5MG [Concomitant]
     Dosage: 1 DAY 1 TABLET
     Dates: start: 20190829, end: 20190913
  7. COLECALCIFEROL CAPSULE  50000IE [Concomitant]
     Dosage: 1 DAY 1 TABLET
  8. METFORMIN [Concomitant]
     Active Substance: METFORMIN HYDROCHLORIDE
     Dosage: MORNING 1 TABLET EVENING 2 TABLETS
  9. SIMVASTATINE TABLET FO 40MG [Concomitant]
     Dosage: EVENING: 1 TABLET
  10. PANZYTRAT 25000 CAPSULE MSR [Concomitant]
     Dosage: 1 TABLET 3 TIMES A DAY
  11. ACETYLSALICYLZUUR TABLET  80MG [Concomitant]
     Dosage: 1 DAY 1 TABLET

REACTIONS (2)
  - Depressed level of consciousness [Recovered/Resolved]
  - Hypersomnia [Recovered/Resolved]

NARRATIVE: CASE EVENT DATE: 20190830
